FAERS Safety Report 9154046 (Version 1)
Quarter: 2013Q1

REPORT INFORMATION
  Report Type: Spontaneous
  Country: FR (occurrence: FR)
  Receive Date: 20130311
  Receipt Date: 20130311
  Transmission Date: 20140127
  Serious: Yes (Hospitalization, Other)
  Sender: FDA-Public Use
  Company Number: FR-PFIZER INC-2013079130

PATIENT
  Age: 69 Year
  Sex: Female

DRUGS (3)
  1. ATENOLOL [Suspect]
     Dosage: UNK
     Route: 048
  2. RASILEZ [Suspect]
     Dosage: UNK
     Route: 048
     Dates: end: 201209
  3. HYPERIUM [Suspect]
     Dosage: UNK
     Route: 048

REACTIONS (2)
  - Lung disorder [Recovered/Resolved]
  - Sjogren^s syndrome [Unknown]
